FAERS Safety Report 5979008-0 (Version None)
Quarter: 2008Q4

REPORT INFORMATION
  Report Type: 
  Country: None (occurrence: None)
  Receive Date: 20081204
  Receipt Date: 20081201
  Transmission Date: 20090506
  Serious: Yes (Hospitalization)
  Sender: FDA-Public Use
  Company Number: IT-ROCHE-575128

PATIENT
  Sex: Female

DRUGS (5)
  1. ROCEPHIN [Suspect]
     Dosage: FORM: VIAL, DOSAGE: 1 X OD
     Route: 030
     Dates: start: 20080401, end: 20080410
  2. SINGULAIR [Suspect]
     Indication: ASTHMA
     Dosage: DOSAGE: 1 X OD
     Route: 048
     Dates: start: 20050101, end: 20080410
  3. LEVOXACIN [Suspect]
     Dosage: DOSAGE: 1 X OD
     Route: 048
     Dates: start: 20080407, end: 20080410
  4. SPIRIVA [Concomitant]
     Indication: ASTHMA
     Route: 048
  5. ALIFLUS [Concomitant]
     Indication: ASTHMA
     Dosage: FORM: INHALATION POWDER
     Route: 055

REACTIONS (5)
  - ALLERGIC GRANULOMATOUS ANGIITIS [None]
  - ASTHMA [None]
  - EOSINOPHILIA [None]
  - POLYNEUROPATHY [None]
  - RASH [None]
